FAERS Safety Report 7897396-5 (Version None)
Quarter: 2011Q4

REPORT INFORMATION
  Report Type: 
  Country: None (occurrence: None)
  Receive Date: 20111107
  Receipt Date: 20111024
  Transmission Date: 20120403
  Serious: Yes (Other)
  Sender: FDA-Public Use
  Company Number: DE-JNJFOC-20111004630

PATIENT
  Sex: Male

DRUGS (2)
  1. REMICADE [Suspect]
     Indication: CROHN'S DISEASE
     Route: 042
     Dates: start: 20110519
  2. METHOTREXATE [Concomitant]
     Indication: CROHN'S DISEASE
     Route: 065
     Dates: start: 20110519

REACTIONS (12)
  - WHEEZING [None]
  - OROPHARYNGEAL PAIN [None]
  - HYPOTENSION [None]
  - FACE OEDEMA [None]
  - PRURITUS [None]
  - MEDICATION ERROR [None]
  - INFUSION RELATED REACTION [None]
  - TACHYCARDIA [None]
  - HEADACHE [None]
  - PALPITATIONS [None]
  - BRONCHOSPASM [None]
  - DYSPNOEA [None]
